FAERS Safety Report 4711269-8 (Version None)
Quarter: 2005Q3

REPORT INFORMATION
  Report Type: 
  Country: None (occurrence: None)
  Receive Date: 20050711
  Receipt Date: 20050706
  Transmission Date: 20060218
  Serious: Yes (Other)
  Sender: FDA-Public Use
  Company Number: 05-07-1145

PATIENT
  Age: 58 Year
  Sex: Female
  Weight: 94 kg

DRUGS (4)
  1. METFORMIN [Suspect]
     Indication: DIABETES MELLITUS
     Dosage: 500MG BD ORAL
     Route: 048
     Dates: start: 20050617, end: 20050620
  2. ASASANTIN [Concomitant]
  3. CRESTOR [Concomitant]
  4. CITALOPRAM [Concomitant]

REACTIONS (4)
  - DEPRESSED MOOD [None]
  - DEPRESSION [None]
  - ENERGY INCREASED [None]
  - HYPOMANIA [None]
